FAERS Safety Report 18798465 (Version 2)
Quarter: 2021Q1

REPORT INFORMATION
  Report Type: Spontaneous
  Country: US (occurrence: US)
  Receive Date: 20210128
  Receipt Date: 20210323
  Transmission Date: 20210419
  Serious: No
  Sender: FDA-Public Use
  Company Number: US-SA-2021SA025765

PATIENT
  Age: 62 Year
  Sex: Male

DRUGS (11)
  1. DUPIXENT [Suspect]
     Active Substance: DUPILUMAB
     Indication: DERMATITIS ATOPIC
     Dosage: 300 MG, QOW
     Route: 058
  2. PROAIR HFA [Concomitant]
     Active Substance: ALBUTEROL SULFATE
  3. BUDESONIDE AND FORMOTEROL [Concomitant]
     Active Substance: BUDESONIDE\FORMOTEROL
  4. HYDROCHLOROTHIAZIDE. [Concomitant]
     Active Substance: HYDROCHLOROTHIAZIDE
  5. XOLAIR [Concomitant]
     Active Substance: OMALIZUMAB
  6. DUPIXENT [Suspect]
     Active Substance: DUPILUMAB
     Indication: ASTHMA
  7. JANSSEN COVID?19 VACCINE [Suspect]
     Active Substance: AD26.COV2.S
     Indication: COVID-19 IMMUNISATION
     Dosage: UNK
     Dates: start: 20210314
  8. TRIAMCINOLONE ACETONIDE. [Concomitant]
     Active Substance: TRIAMCINOLONE ACETONIDE
  9. MONTELUKAST SODIUM. [Concomitant]
     Active Substance: MONTELUKAST SODIUM
  10. PANTOPRAZOLE SODIUM. [Concomitant]
     Active Substance: PANTOPRAZOLE SODIUM
  11. SYMBICORT [Concomitant]
     Active Substance: BUDESONIDE\FORMOTEROL FUMARATE DIHYDRATE

REACTIONS (3)
  - COVID-19 [Unknown]
  - Product dose omission issue [Unknown]
  - Fatigue [Unknown]

NARRATIVE: CASE EVENT DATE: 202103
